FAERS Safety Report 5392151-2 (Version None)
Quarter: 2007Q3

REPORT INFORMATION
  Report Type: 
  Country: None (occurrence: None)
  Receive Date: 20070720
  Receipt Date: 20070716
  Transmission Date: 20080115
  Serious: Yes (Hospitalization)
  Sender: FDA-Public Use
  Company Number: US-BAYER-200710105BWH

PATIENT
  Age: 61 Year
  Sex: Male

DRUGS (10)
  1. NEXAVAR [Suspect]
     Indication: RENAL CELL CARCINOMA STAGE UNSPECIFIED
     Dosage: TOTAL DAILY DOSE: 800 MG  UNIT DOSE: 200 MG
     Route: 048
     Dates: start: 20060901
  2. NEXAVAR [Suspect]
     Route: 048
     Dates: start: 20070515, end: 20070522
  3. NEXAVAR [Suspect]
     Route: 048
     Dates: end: 20070425
  4. OXYCODONE HCL [Concomitant]
     Dosage: TOTAL DAILY DOSE: 200 MG
  5. HYDROCORT [Concomitant]
     Dosage: TOTAL DAILY DOSE: 40 MG
  6. ATENOLOL [Concomitant]
  7. CLONAZEPAM [Concomitant]
  8. SENOKOT [Concomitant]
  9. ALPHAGAN [Concomitant]
  10. XALATAN [Concomitant]

REACTIONS (10)
  - CHEST X-RAY ABNORMAL [None]
  - DYSPHONIA [None]
  - DYSPNOEA [None]
  - HOT FLUSH [None]
  - HYPERHIDROSIS [None]
  - JOINT SWELLING [None]
  - OEDEMA PERIPHERAL [None]
  - PAIN IN EXTREMITY [None]
  - THROMBOSIS [None]
  - WHEEZING [None]
